FAERS Safety Report 9331871 (Version 2)
Quarter: 2013Q2

REPORT INFORMATION
  Report Type: Spontaneous
  Country: US (occurrence: None)
  Receive Date: 20130603
  Receipt Date: 20130618
  Transmission Date: 20140414
  Serious: Yes (Life-Threatening)
  Sender: FDA-Public Use
  Company Number: 2013P1006527

PATIENT
  Age: 36 Year
  Sex: Female

DRUGS (2)
  1. FENTANYL CITRATE [Suspect]
     Indication: SEDATIVE THERAPY
     Dates: start: 20130523, end: 20130523
  2. MIDAZOLAM HCL [Suspect]

REACTIONS (12)
  - Blood pressure fluctuation [None]
  - Labile blood pressure [None]
  - Sinus tachycardia [None]
  - Oxygen saturation decreased [None]
  - Snoring [None]
  - Dyspnoea [None]
  - Respiratory rate decreased [None]
  - Pulse absent [None]
  - Drug ineffective [None]
  - Product quality issue [None]
  - Unresponsive to stimuli [None]
  - Product quality issue [None]
